FAERS Safety Report 8338145-6 (Version None)
Quarter: 2012Q2

REPORT INFORMATION
  Report Type: 
  Country: None (occurrence: None)
  Receive Date: 20120504
  Receipt Date: 20120424
  Transmission Date: 20120825
  Serious: Yes (Other)
  Sender: FDA-Public Use
  Company Number: US-JNJFOC-20120502899

PATIENT

DRUGS (1)
  1. HYDROGEN PEROXIDE SOLUTION [Suspect]
     Indication: PRODUCT USED FOR UNKNOWN INDICATION
     Dosage: A ^BOTTLE^ OF 3% HYDROGEN PEROXIDE
     Route: 048

REACTIONS (6)
  - SUICIDE ATTEMPT [None]
  - INCORRECT ROUTE OF DRUG ADMINISTRATION [None]
  - THROAT IRRITATION [None]
  - HAEMATEMESIS [None]
  - INTENTIONAL DRUG MISUSE [None]
  - VOMITING [None]
